FAERS Safety Report 6856649-X (Version None)
Quarter: 2010Q3

REPORT INFORMATION
  Report Type: 
  Country: None (occurrence: None)
  Receive Date: 20100719
  Receipt Date: 20100713
  Transmission Date: 20110219
  Serious: Yes (Other)
  Sender: FDA-Public Use
  Company Number: HR-MERCK-1007USA01493

PATIENT
  Age: 37 Month
  Sex: Female
  Weight: 17 kg

DRUGS (2)
  1. SINGULAIR [Suspect]
     Indication: ASTHMA
     Route: 048
     Dates: start: 20100201, end: 20100301
  2. FLIXOTIDE [Concomitant]
     Indication: ASTHMA
     Route: 055
     Dates: start: 20091102

REACTIONS (2)
  - AFFECTIVE DISORDER [None]
  - IRRITABILITY [None]
